FAERS Safety Report 9781210 (Version 1)
Quarter: 2013Q4

REPORT INFORMATION
  Report Type: Spontaneous
  Country: GB (occurrence: None)
  Receive Date: 20131223
  Receipt Date: 20131223
  Transmission Date: 20140711
  Serious: Yes (Death, Life-Threatening, Hospitalization)
  Sender: FDA-Public Use
  Company Number: None

PATIENT
  Age: 40 Year
  Sex: Female

DRUGS (1)
  1. YASMIN 3MG/0.03MG BAYER [Suspect]
     Indication: MENSTRUAL DISORDER
     Route: 048

REACTIONS (2)
  - Cerebral haemorrhage [None]
  - Brain stem thrombosis [None]
